FAERS Safety Report 6190596-4 (Version None)
Quarter: 2009Q2

REPORT INFORMATION
  Report Type: 
  Country: None (occurrence: None)
  Receive Date: 20090514
  Receipt Date: 20090220
  Transmission Date: 20091009
  Serious: Yes (Hospitalization)
  Sender: FDA-Public Use
  Company Number: US-BRISTOL-MYERS SQUIBB COMPANY-14515126

PATIENT
  Age: 65 Year
  Sex: Female

DRUGS (1)
  1. IXEMPRA KIT [Suspect]
     Indication: BREAST CANCER METASTATIC

REACTIONS (4)
  - BONE MARROW FAILURE [None]
  - MYALGIA [None]
  - NEUROPATHY PERIPHERAL [None]
  - RESPIRATORY TRACT HAEMORRHAGE [None]
